FAERS Safety Report 25810511 (Version 1)
Quarter: 2025Q3

REPORT INFORMATION
  Report Type: Spontaneous
  Country: US (occurrence: US)
  Receive Date: 20250917
  Receipt Date: 20250917
  Transmission Date: 20251021
  Serious: Yes (Other)
  Sender: COOPERSURGICAL
  Company Number: US-COOPERSURGICAL, INC.-2025CPS006655

PATIENT
  Age: 27 Year
  Sex: Female
  Weight: 88.435 kg

DRUGS (1)
  1. PARAGARD T 380A [Suspect]
     Active Substance: COPPER
     Route: 015
     Dates: start: 20070201

REACTIONS (8)
  - Surgery [Recovered/Resolved]
  - Procedural pain [Recovered/Resolved]
  - Pain [Unknown]
  - Abnormal uterine bleeding [Unknown]
  - Abdominal pain [Recovered/Resolved]
  - Pelvic pain [Unknown]
  - Vaginal haemorrhage [Unknown]
  - Device expulsion [Recovered/Resolved]

NARRATIVE: CASE EVENT DATE: 20081030
